FAERS Safety Report 21078455 (Version 1)
Quarter: 2022Q3

REPORT INFORMATION
  Report Type: Report from Study
  Country: US (occurrence: US)
  Receive Date: 20220713
  Receipt Date: 20220713
  Transmission Date: 20221027
  Serious: No
  Sender: FDA-Public Use
  Company Number: US-VANDA PHARMACEUTICALS, INC-2022TASUS005708

PATIENT
  Sex: Female

DRUGS (3)
  1. HETLIOZ [Suspect]
     Active Substance: TASIMELTEON
     Indication: Non-24-hour sleep-wake disorder
     Dosage: 20 MILLIGRAM, QD, TAKE 20 MG BY MOUTH DAILY AT THE SAME TIME EACH NIGHT 1 HOUR BEFORE BEDTIME, WITHO
     Route: 048
     Dates: start: 20211112
  2. SINGULAIR [Concomitant]
     Active Substance: MONTELUKAST SODIUM
     Indication: Product used for unknown indication
  3. FLONASE [Concomitant]
     Active Substance: FLUTICASONE PROPIONATE
     Indication: Product used for unknown indication

REACTIONS (3)
  - Middle insomnia [Unknown]
  - Insomnia [Unknown]
  - Headache [Unknown]
